FAERS Safety Report 5087738-0 (Version None)
Quarter: 2006Q3

REPORT INFORMATION
  Report Type: 
  Country: None (occurrence: None)
  Receive Date: 20060822
  Receipt Date: 20060822
  Transmission Date: 20061208
  Serious: Yes (Disabling)
  Sender: FDA-Public Use
  Company Number: None

PATIENT
  Sex: Female
  Weight: 76.2043 kg

DRUGS (7)
  1. LEVAQUIN [Suspect]
     Indication: SINUSITIS
     Dosage: 750 MG  DAILY  ORAL
     Route: 048
     Dates: start: 20060722, end: 20060726
  2. VERAPAMIL [Concomitant]
  3. PRILOSEC [Concomitant]
  4. SYNTHROID [Concomitant]
  5. TOPAMAX [Concomitant]
  6. NORTRIPTYLINE HCL [Concomitant]
  7. SINGULAIR [Concomitant]

REACTIONS (4)
  - AMNESIA [None]
  - ARTHRALGIA [None]
  - DIZZINESS [None]
  - FATIGUE [None]
